FAERS Safety Report 19477219 (Version 1)
Quarter: 2021Q2

REPORT INFORMATION
  Report Type: Spontaneous
  Country: GB (occurrence: GB)
  Receive Date: 20210630
  Receipt Date: 20210630
  Transmission Date: 20210717
  Serious: Yes (Hospitalization)
  Sender: FDA-Public Use
  Company Number: GB-MYLANLABS-2021M1037815

PATIENT
  Age: 48 Year
  Sex: Female

DRUGS (9)
  1. FLUCLOXACILLIN [Suspect]
     Active Substance: FLUCLOXACILLIN
     Indication: CELLULITIS
  2. ACICLOVIR [Suspect]
     Active Substance: ACYCLOVIR
     Indication: GASTROENTERITIS SALMONELLA
     Dosage: UNK
     Route: 048
  3. AZITHROMYCIN ANHYDROUS. [Suspect]
     Active Substance: AZITHROMYCIN ANHYDROUS
     Indication: CELLULITIS
  4. ACICLOVIR [Suspect]
     Active Substance: ACYCLOVIR
     Indication: CELLULITIS
  5. FLUCLOXACILLIN [Suspect]
     Active Substance: FLUCLOXACILLIN
     Indication: GASTROENTERITIS SALMONELLA
     Dosage: UNK
     Route: 042
  6. FLUCLOXACILLIN [Suspect]
     Active Substance: FLUCLOXACILLIN
     Indication: HERPES SIMPLEX
  7. AZITHROMYCIN ANHYDROUS. [Suspect]
     Active Substance: AZITHROMYCIN ANHYDROUS
     Indication: GASTROENTERITIS SALMONELLA
     Dosage: UNK
     Route: 048
  8. ACICLOVIR [Suspect]
     Active Substance: ACYCLOVIR
     Indication: HERPES SIMPLEX
  9. AZITHROMYCIN ANHYDROUS. [Suspect]
     Active Substance: AZITHROMYCIN ANHYDROUS
     Indication: HERPES SIMPLEX

REACTIONS (1)
  - Drug ineffective [Unknown]
